FAERS Safety Report 7069262-9 (Version None)
Quarter: 2010Q4

REPORT INFORMATION
  Report Type: 
  Country: None (occurrence: None)
  Receive Date: 20101028
  Receipt Date: 20101022
  Transmission Date: 20110411
  Serious: Yes (Death)
  Sender: FDA-Public Use
  Company Number: US-GILEAD-2010-0032845

PATIENT
  Sex: Male
  Weight: 70.37 kg

DRUGS (10)
  1. LETAIRIS [Suspect]
     Indication: PULMONARY ARTERIAL HYPERTENSION
     Route: 048
     Dates: start: 20080502
  2. OXYGEN [Concomitant]
  3. LASIX [Concomitant]
  4. ALTACE [Concomitant]
  5. ALLOPURINOL [Concomitant]
  6. LORATADINE [Concomitant]
  7. LEXAPRO [Concomitant]
  8. NEXIUM [Concomitant]
  9. FOLIC ACID [Concomitant]
  10. POTASSIUM CHLORIDE [Concomitant]

REACTIONS (1)
  - DEATH [None]
